FAERS Safety Report 9125829 (Version 1)
Quarter: 2013Q1

REPORT INFORMATION
  Report Type: Spontaneous
  Country: SE (occurrence: SE)
  Receive Date: 20130117
  Receipt Date: 20130117
  Transmission Date: 20140127
  Serious: Yes (Life-Threatening)
  Sender: FDA-Public Use
  Company Number: SE-ROCHE-1180393

PATIENT
  Age: 76 Year
  Sex: Female

DRUGS (14)
  1. LUCENTIS [Suspect]
     Indication: AGE-RELATED MACULAR DEGENERATION
     Dosage: 10 MG/ML
     Route: 050
     Dates: start: 20100406
  2. LUCENTIS [Suspect]
     Dosage: 10 MG/ML
     Route: 050
     Dates: start: 20120904
  3. MOVICOL [Concomitant]
  4. VESICARE [Concomitant]
  5. OMEPRAZOLE [Concomitant]
  6. METOPROLOL [Concomitant]
  7. SIMVASTATIN [Concomitant]
  8. ZOLPIDEM [Concomitant]
  9. AMLODIPINE [Concomitant]
  10. FRAGMIN [Concomitant]
  11. ALVEDON [Concomitant]
  12. TRANDATE [Concomitant]
  13. OXASCAND [Concomitant]
  14. TRADOLAN [Concomitant]

REACTIONS (1)
  - Cerebrovascular accident [Not Recovered/Not Resolved]
